FAERS Safety Report 11093017 (Version 1)
Quarter: 2015Q2

REPORT INFORMATION
  Report Type: Spontaneous
  Country: CA (occurrence: CA)
  Receive Date: 20150506
  Receipt Date: 20150506
  Transmission Date: 20150821
  Serious: Yes (Hospitalization)
  Sender: FDA-Public Use
  Company Number: CA-B.I. PHARMACEUTICALS,INC./RIDGEFIELD-2015-BI-23166CN

PATIENT
  Age: 76 Year
  Sex: Male

DRUGS (2)
  1. XATRAL [Suspect]
     Active Substance: ALFUZOSIN
     Indication: PRODUCT USED FOR UNKNOWN INDICATION
     Dosage: FORMULATION: TABLET (EXTENDED-RELEASE)
     Route: 048
  2. FLOMAX [Suspect]
     Active Substance: TAMSULOSIN HYDROCHLORIDE
     Indication: PRODUCT USED FOR UNKNOWN INDICATION
     Dosage: 0.4 MG
     Route: 048

REACTIONS (6)
  - Abdominal distension [Recovered/Resolved]
  - Nausea [Recovered/Resolved]
  - Vomiting [Recovered/Resolved]
  - Appendicitis [Recovered/Resolved]
  - Diarrhoea [Recovered/Resolved]
  - Abdominal pain lower [Recovered/Resolved]
